FAERS Safety Report 6142740-2 (Version None)
Quarter: 2009Q2

REPORT INFORMATION
  Report Type: 
  Country: None (occurrence: None)
  Receive Date: 20090402
  Receipt Date: 20090402
  Transmission Date: 20091009
  Serious: Yes (Hospitalization)
  Sender: FDA-Public Use
  Company Number: None

PATIENT
  Sex: Male
  Weight: 68 kg

DRUGS (2)
  1. FLUOROURACIL [Suspect]
     Dosage: 3800 MG
  2. LEUCOVORIN CALCIUM [Suspect]
     Dosage: 180 MG

REACTIONS (2)
  - ABDOMINAL PAIN [None]
  - CALCULUS URETERIC [None]
